FAERS Safety Report 15917106 (Version 1)
Quarter: 2019Q1

REPORT INFORMATION
  Report Type: Spontaneous
  Country: FR (occurrence: FR)
  Receive Date: 20190205
  Receipt Date: 20190205
  Transmission Date: 20190417
  Serious: Yes (Hospitalization)
  Sender: FDA-Public Use
  Company Number: FR-ACCORD-105185

PATIENT
  Age: 61 Year
  Sex: Female
  Weight: 74.6 kg

DRUGS (9)
  1. LEVOTHYROX [Concomitant]
     Active Substance: LEVOTHYROXINE
  2. VALDOXAN [Concomitant]
     Active Substance: AGOMELATINE
  3. TERALITHE [Concomitant]
     Active Substance: LITHIUM CARBONATE
  4. DEROXAT [Concomitant]
     Active Substance: PAROXETINE HYDROCHLORIDE
  5. SERESTA [Concomitant]
     Active Substance: OXAZEPAM
  6. INEXIUM [Concomitant]
     Active Substance: ESOMEPRAZOLE
  7. PRAVASTATIN. [Suspect]
     Active Substance: PRAVASTATIN
     Indication: HYPERCHOLESTEROLAEMIA
     Route: 048
  8. PREVISCAN (FLUINDIONE) [Suspect]
     Active Substance: FLUINDIONE
     Indication: PULMONARY EMBOLISM
     Dosage: STRENGTH: 20 MG
     Route: 048
     Dates: end: 20180228
  9. TEMESTA [LORAZEPAM] [Concomitant]
     Active Substance: LORAZEPAM

REACTIONS (1)
  - Cerebellar haematoma [Recovering/Resolving]

NARRATIVE: CASE EVENT DATE: 20180228
